FAERS Safety Report 11418407 (Version 9)
Quarter: 2016Q1

REPORT INFORMATION
  Report Type: Report from Study
  Country: US (occurrence: US)
  Receive Date: 20150826
  Receipt Date: 20160209
  Transmission Date: 20160525
  Serious: Yes (Other)
  Sender: FDA-Public Use
  Company Number: US-UCBSA-2015022819

PATIENT
  Age: 38 Year
  Sex: Female

DRUGS (4)
  1. LEVETIRACETAM. [Suspect]
     Active Substance: LEVETIRACETAM
     Indication: MIGRAINE
     Dosage: UNKNOWN
  2. LEVETIRACETAM. [Suspect]
     Active Substance: LEVETIRACETAM
     Indication: SEIZURE
  3. LEVETIRACETAM. [Suspect]
     Active Substance: LEVETIRACETAM
     Indication: OFF LABEL USE
  4. LAMICTAL [Suspect]
     Active Substance: LAMOTRIGINE
     Indication: PRODUCT USED FOR UNKNOWN INDICATION
     Dosage: 50 MG, UNK

REACTIONS (19)
  - Mood swings [Unknown]
  - Headache [Unknown]
  - Amnesia [Unknown]
  - Apparent death [Unknown]
  - Frustration tolerance decreased [Unknown]
  - Depression [Recovering/Resolving]
  - Tremor [Unknown]
  - Photopsia [Unknown]
  - Thinking abnormal [Unknown]
  - Anger [Unknown]
  - Therapeutic response unexpected [Recovered/Resolved]
  - Irritability [Unknown]
  - Loss of consciousness [Unknown]
  - Off label use [Unknown]
  - Suicidal ideation [Unknown]
  - Nausea [Unknown]
  - Tinnitus [Unknown]
  - Abnormal behaviour [Unknown]
  - Emotional disorder [Unknown]
